FAERS Safety Report 6753790-7 (Version None)
Quarter: 2010Q2

REPORT INFORMATION
  Report Type: 
  Country: None (occurrence: None)
  Receive Date: 20100520
  Receipt Date: 20090506
  Transmission Date: 20101027
  Serious: Yes (Other)
  Sender: FDA-Public Use
  Company Number: 2009209637

PATIENT
  Age: 46 Year
  Sex: Female
  Weight: 77.1 kg

DRUGS (7)
  1. PROVERA [Suspect]
     Indication: HORMONE REPLACEMENT THERAPY
     Dosage: 10 MG, ORAL
     Route: 048
     Dates: start: 19890701, end: 19970401
  2. PREMARIN [Suspect]
     Indication: HORMONE REPLACEMENT THERAPY
     Dosage: 0.625 MG ; 1.25 MG
     Dates: start: 19890701, end: 19891201
  3. PREMARIN [Suspect]
     Indication: HORMONE REPLACEMENT THERAPY
     Dosage: 0.625 MG ; 1.25 MG
     Dates: start: 19891201, end: 19970401
  4. VIVELLE-DOT [Suspect]
     Indication: HORMONE REPLACEMENT THERAPY
     Dosage: 0.1 MG
     Dates: start: 19970401, end: 20000401
  5. VALIUM [Concomitant]
  6. ZOLOFT [Concomitant]
  7. RESTORIL [Concomitant]

REACTIONS (1)
  - BREAST CANCER [None]
